FAERS Safety Report 10192098 (Version 2)
Quarter: 2014Q2

REPORT INFORMATION
  Report Type: Spontaneous
  Country: US (occurrence: US)
  Receive Date: 20140523
  Receipt Date: 20140613
  Transmission Date: 20141212
  Serious: Yes (Hospitalization)
  Sender: FDA-Public Use
  Company Number: US-JNJFOC-20140513989

PATIENT
  Age: 77 Year
  Sex: Male
  Weight: 81 kg

DRUGS (10)
  1. IMBRUVICA [Suspect]
     Indication: CHRONIC LYMPHOCYTIC LEUKAEMIA
     Route: 048
     Dates: start: 201404
  2. IMBRUVICA [Suspect]
     Indication: CHRONIC LYMPHOCYTIC LEUKAEMIA
     Route: 048
     Dates: end: 20140509
  3. ASPIRIN [Concomitant]
     Dates: end: 20140507
  4. ZANTAC [Concomitant]
     Indication: GASTROINTESTINAL DISORDER
     Route: 048
  5. ISOSORBIDE [Concomitant]
  6. ISOSORBIDE [Concomitant]
  7. ZOCOR [Concomitant]
     Dosage: UNKNOWN
     Dates: end: 20140507
  8. NITROGLYCERIN [Concomitant]
     Indication: CHEST PAIN
  9. ATENOLOL [Concomitant]
     Route: 048
     Dates: start: 201402
  10. ATENOLOL [Concomitant]
     Route: 048

REACTIONS (9)
  - Hypotension [Unknown]
  - Venous occlusion [Unknown]
  - VIIth nerve paralysis [Recovered/Resolved]
  - Speech disorder [Recovered/Resolved]
  - Fall [Recovered/Resolved]
  - Dry skin [Unknown]
  - Back pain [Recovered/Resolved]
  - Local swelling [Recovering/Resolving]
  - Diarrhoea [Recovered/Resolved]
